FAERS Safety Report 6418619-5 (Version None)
Quarter: 2009Q4

REPORT INFORMATION
  Report Type: 
  Country: None (occurrence: None)
  Receive Date: 20091026
  Receipt Date: 20091013
  Transmission Date: 20100525
  Serious: Yes (Other)
  Sender: FDA-Public Use
  Company Number: ADR37022009

PATIENT
  Age: 62 Year
  Sex: Male

DRUGS (5)
  1. SIMVASTATIN [Suspect]
     Indication: HYPERLIPIDAEMIA
     Dosage: 40 MG ORAL
     Route: 048
     Dates: start: 20061121, end: 20070625
  2. LISINOPRIL [Concomitant]
  3. METFORMIN HCL [Concomitant]
  4. SALAMOL [Concomitant]
  5. SYMBICORT [Concomitant]

REACTIONS (2)
  - HAEMOGLOBIN DECREASED [None]
  - PLATELET COUNT DECREASED [None]
